FAERS Safety Report 10581533 (Version 1)
Quarter: 2014Q4

REPORT INFORMATION
  Report Type: Spontaneous
  Country: US (occurrence: None)
  Receive Date: 20141110
  Receipt Date: 20141110
  Transmission Date: 20150529
  Serious: Yes (Hospitalization)
  Sender: FDA-Public Use
  Company Number: VAL_03559_2014

PATIENT
  Sex: Female

DRUGS (12)
  1. UBIQUINOL [Concomitant]
  2. CHLOROTHIAZIDE. [Concomitant]
     Active Substance: CHLOROTHIAZIDE
  3. EPOGEN [Concomitant]
     Active Substance: ERYTHROPOIETIN
  4. CALCIUM CARBONATE. [Concomitant]
     Active Substance: CALCIUM CARBONATE
  5. AMLODIPINE [Concomitant]
     Active Substance: AMLODIPINE BESYLATE
  6. ERGOCALCIFERON [Concomitant]
  7. CALCITRIOL. [Suspect]
     Active Substance: CALCITRIOL
     Indication: PRODUCT USED FOR UNKNOWN INDICATION
     Route: 048
  8. FUROSEMIDE. [Concomitant]
     Active Substance: FUROSEMIDE
  9. FERROUS SULFATE [Concomitant]
     Active Substance: FERROUS SULFATE\FERROUS SULFATE, DRIED
  10. KAYEXALATE [Concomitant]
     Active Substance: SODIUM POLYSTYRENE SULFONATE
  11. VITAMIN E\VITAMINS [Concomitant]
     Active Substance: .ALPHA.-TOCOPHEROL\VITAMINS
  12. DIURIL [Concomitant]
     Active Substance: CHLOROTHIAZIDE

REACTIONS (21)
  - Epistaxis [None]
  - Fluid overload [None]
  - Blood creatinine increased [None]
  - Hyperkalaemia [None]
  - Headache [None]
  - Ecchymosis [None]
  - Abdominal pain [None]
  - Dry skin [None]
  - Contusion [None]
  - Insomnia [None]
  - Anaemia [None]
  - Oedema peripheral [None]
  - Fatigue [None]
  - Personality change [None]
  - Asthenia [None]
  - Face oedema [None]
  - Periorbital oedema [None]
  - Pain in extremity [None]
  - Platelet dysfunction [None]
  - Azotaemia [None]
  - Renal impairment [None]
